FAERS Safety Report 4286375-5 (Version None)
Quarter: 2004Q1

REPORT INFORMATION
  Report Type: 
  Country: None (occurrence: None)
  Receive Date: 20040205
  Receipt Date: 20031217
  Transmission Date: 20041129
  Serious: Yes (Other)
  Sender: FDA-Public Use
  Company Number: WAES 0312ITA00020

PATIENT
  Age: 63 Year
  Sex: Female

DRUGS (3)
  1. MEPREDNISONE [Concomitant]
     Indication: ASTHMA
     Route: 048
     Dates: start: 20030101, end: 20031204
  2. MEPREDNISONE [Concomitant]
     Route: 048
     Dates: start: 20031217
  3. SINGULAIR [Suspect]
     Indication: ASTHMA
     Route: 048
     Dates: start: 20031201, end: 20031215

REACTIONS (1)
  - ALLERGIC GRANULOMATOUS ANGIITIS [None]
